FAERS Safety Report 4799975-0 (Version None)
Quarter: 2005Q4

REPORT INFORMATION
  Report Type: 
  Country: None (occurrence: None)
  Receive Date: 20051013
  Receipt Date: 20050928
  Transmission Date: 20060501
  Serious: Yes (Death)
  Sender: FDA-Public Use
  Company Number: 05LEB0207

PATIENT
  Age: 77 Year
  Sex: 0

DRUGS (1)
  1. AGGRASTAT [Suspect]

REACTIONS (1)
  - DEATH [None]
